FAERS Safety Report 10220857 (Version 3)
Quarter: 2014Q2

REPORT INFORMATION
  Report Type: Spontaneous
  Country: DE (occurrence: DE)
  Receive Date: 20140606
  Receipt Date: 20140611
  Transmission Date: 20141212
  Serious: Yes (Hospitalization)
  Sender: FDA-Public Use
  Company Number: DE-JNJFOC-20140315382

PATIENT
  Sex: Female
  Weight: 76 kg

DRUGS (4)
  1. XARELTO [Suspect]
     Indication: EMBOLISM VENOUS
     Route: 048
     Dates: start: 20140121, end: 20140203
  2. XARELTO [Suspect]
     Indication: DEEP VEIN THROMBOSIS
     Route: 048
     Dates: start: 20140121, end: 20140203
  3. CLEXANE [Concomitant]
     Dosage: 1-0-1
     Route: 065
  4. VERAPAMIL [Concomitant]
     Dosage: 1-0-0
     Route: 065

REACTIONS (1)
  - Abdominal discomfort [Unknown]
